FAERS Safety Report 8397209-1 (Version None)
Quarter: 2012Q2

REPORT INFORMATION
  Report Type: 
  Country: None (occurrence: None)
  Receive Date: 20120530
  Receipt Date: 20120525
  Transmission Date: 20120825
  Serious: Yes (Life-Threatening, Hospitalization)
  Sender: FDA-Public Use
  Company Number: US-MERCK-1205USA02856

PATIENT
  Sex: Female
  Weight: 75 kg

DRUGS (2)
  1. SINGULAIR [Suspect]
     Route: 048
     Dates: start: 20110302
  2. SINGULAIR [Suspect]
     Indication: SINUS DISORDER
     Route: 048
     Dates: start: 20110301

REACTIONS (4)
  - DIARRHOEA [None]
  - PNEUMONIA [None]
  - COUGH [None]
  - INFLUENZA [None]
